FAERS Safety Report 8534157-8 (Version None)
Quarter: 2012Q3

REPORT INFORMATION
  Report Type: 
  Country: None (occurrence: None)
  Receive Date: 20120711
  Receipt Date: 20120626
  Transmission Date: 20120928
  Serious: Yes (Hospitalization)
  Sender: FDA-Public Use
  Company Number: 2007S1003382

PATIENT
  Age: 55 Year
  Sex: Female
  Weight: 54.8852 kg

DRUGS (9)
  1. LOMOTIL [Concomitant]
  2. SODIUM PHOSPHATES [Suspect]
     Indication: COLONOSCOPY
     Dosage: 133 ML; X1; RTL
     Dates: start: 20070208, end: 20070208
  3. PHOSPHOSODA FLAVOR NOT SPECIFIED [Suspect]
     Indication: COLONOSCOPY
     Dosage: 90 ML; TOTAL; PO
     Route: 048
     Dates: start: 20070207, end: 20070207
  4. DULCOLAX [Suspect]
     Indication: COLONOSCOPY
     Dosage: 10 MG; X1; PO
     Route: 048
     Dates: start: 20070207, end: 20070207
  5. LOTRISONE [Concomitant]
  6. OS-CAL 500 + D [Concomitant]
  7. ZYRTEC [Concomitant]
  8. BONIVA [Concomitant]
  9. PREMARIN [Concomitant]

REACTIONS (13)
  - ASTHENIA [None]
  - URINARY TRACT INFECTION ENTEROCOCCAL [None]
  - CHEST PAIN [None]
  - RESPIRATORY DISTRESS [None]
  - HAEMODIALYSIS [None]
  - DIARRHOEA [None]
  - RENAL FAILURE ACUTE [None]
  - RECTAL HAEMORRHAGE [None]
  - HYPERTENSION [None]
  - HYPERKALAEMIA [None]
  - METABOLIC ACIDOSIS [None]
  - HYPOVOLAEMIA [None]
  - DYSPNOEA [None]
